FAERS Safety Report 10045448 (Version 1)
Quarter: 2014Q1

REPORT INFORMATION
  Report Type: Spontaneous
  Country: GB (occurrence: GB)
  Receive Date: 20140328
  Receipt Date: 20140328
  Transmission Date: 20141002
  Serious: Yes (Life-Threatening, Hospitalization, Other)
  Sender: FDA-Public Use
  Company Number: GB-ASTRAZENECA-2014SE20356

PATIENT
  Age: 51 Year
  Sex: Female

DRUGS (14)
  1. OMEPRAZOLE [Suspect]
     Indication: DYSPEPSIA
     Route: 048
  2. OMEPRAZOLE [Suspect]
     Indication: DYSPEPSIA
     Route: 048
     Dates: start: 20130307, end: 20130307
  3. NAPROXEN [Suspect]
     Indication: PAIN
     Route: 048
  4. NAPROXEN [Suspect]
     Indication: PAIN
     Route: 048
     Dates: start: 20130307, end: 20130307
  5. PARACETAMOL [Suspect]
     Indication: PAIN
     Route: 048
  6. PARACETAMOL [Suspect]
     Indication: PAIN
     Route: 048
  7. PARACETAMOL [Suspect]
     Indication: PAIN
     Route: 048
     Dates: start: 20130307, end: 20130307
  8. AMOXICILLIN [Suspect]
     Route: 065
  9. AMOXICILLIN [Suspect]
     Route: 065
     Dates: start: 20130307, end: 20130307
  10. AIN457 [Suspect]
     Indication: PSORIASIS
     Route: 058
     Dates: start: 20121214, end: 20130205
  11. CITALOPRAM [Suspect]
     Indication: DEPRESSION
     Route: 048
  12. CITALOPRAM [Suspect]
     Indication: DEPRESSION
     Route: 048
     Dates: start: 20130307, end: 20130307
  13. LEVOTHYROXINE [Suspect]
     Indication: HYPOTHYROIDISM
     Route: 048
  14. LEVOTHYROXINE [Suspect]
     Indication: HYPOTHYROIDISM
     Route: 048
     Dates: start: 20130307, end: 20130307

REACTIONS (2)
  - Intentional overdose [Recovering/Resolving]
  - Suicide attempt [Recovering/Resolving]
